FAERS Safety Report 9675865 (Version 2)
Quarter: 2013Q4

REPORT INFORMATION
  Report Type: Spontaneous
  Country: FR (occurrence: FR)
  Receive Date: 20131107
  Receipt Date: 20131223
  Transmission Date: 20140711
  Serious: Yes (Hospitalization)
  Sender: FDA-Public Use
  Company Number: FR-GLAXOSMITHKLINE-B0936969A

PATIENT
  Age: 91 Year
  Sex: Female

DRUGS (9)
  1. ARIXTRA [Suspect]
     Indication: THROMBOPHLEBITIS
     Dosage: 7.5MG PER DAY
     Route: 058
     Dates: start: 20130912, end: 20130916
  2. PREVISCAN (FLUINDIONE) [Suspect]
     Indication: THROMBOPHLEBITIS
     Dosage: 10MG SINGLE DOSE
     Route: 048
     Dates: start: 20130916, end: 20130916
  3. ALLOPURINOL [Concomitant]
     Indication: GOUTY ARTHRITIS
     Dosage: 200MG PER DAY
     Route: 048
     Dates: end: 20130916
  4. TARDYFERON [Concomitant]
     Indication: IRON DEFICIENCY
     Dosage: 80MG PER DAY
     Route: 048
     Dates: end: 20130916
  5. KALEORID [Concomitant]
     Indication: BLOOD POTASSIUM ABNORMAL
     Route: 048
  6. RISPERDAL [Concomitant]
     Dosage: 1MG PER DAY
     Route: 048
  7. LASILIX [Concomitant]
     Indication: HYPERTENSION
     Dosage: 40MG SEE DOSAGE TEXT
     Route: 048
     Dates: end: 20130923
  8. NOCTAMIDE [Concomitant]
     Indication: INSOMNIA
     Dosage: 2MG AT NIGHT
     Route: 048
  9. OMEPRAZOLE [Concomitant]
     Indication: DUODENOGASTRIC REFLUX
     Dosage: 20UNIT IN THE MORNING
     Route: 048

REACTIONS (10)
  - Breast haematoma [Recovered/Resolved]
  - Haematoma [Recovered/Resolved]
  - Anaemia [Recovered/Resolved]
  - Breast haemorrhage [Recovered/Resolved]
  - Renal failure acute [Unknown]
  - Injury [Unknown]
  - Dizziness [Unknown]
  - Body temperature decreased [Unknown]
  - Pallor [Unknown]
  - Drug interaction [Unknown]
